FAERS Safety Report 17883562 (Version 1)
Quarter: 2020Q2

REPORT INFORMATION
  Report Type: Report from Study
  Country: US (occurrence: US)
  Receive Date: 20200611
  Receipt Date: 20200611
  Transmission Date: 20200714
  Serious: Yes (Hospitalization)
  Sender: FDA-Public Use
  Company Number: US-ROCHE-2615988

PATIENT
  Sex: Male
  Weight: 164.35 kg

DRUGS (33)
  1. OCREVUS [Suspect]
     Active Substance: OCRELIZUMAB
     Indication: MULTIPLE SCLEROSIS
  2. LEVETIRACETAM. [Concomitant]
     Active Substance: LEVETIRACETAM
     Indication: EPILEPSY
     Dosage: 1 TABLET TWICE A DAY FOR 30 DAYS
     Route: 048
     Dates: start: 20180209
  3. LEVOTHYROXINE. [Concomitant]
     Active Substance: LEVOTHYROXINE
     Route: 065
     Dates: start: 20180206
  4. AMITRIPTYLINE [Concomitant]
     Active Substance: AMITRIPTYLINE
     Route: 065
     Dates: start: 20180123
  5. DOXEPIN [Concomitant]
     Active Substance: DOXEPIN
     Dosage: 1 CAPSULE 3 TIMES A DAY
     Route: 048
     Dates: start: 20171027
  6. FENOFIBRATE. [Concomitant]
     Active Substance: FENOFIBRATE
     Route: 065
     Dates: start: 20171027
  7. LISINOPRIL. [Concomitant]
     Active Substance: LISINOPRIL
     Route: 048
     Dates: start: 20180126
  8. VITAMIN D3 [Concomitant]
     Active Substance: CHOLECALCIFEROL
     Route: 065
     Dates: start: 20171027
  9. OCREVUS [Suspect]
     Active Substance: OCRELIZUMAB
     Indication: PRIMARY PROGRESSIVE MULTIPLE SCLEROSIS
     Dosage: 2 10 ML VIALS?30 MG/ML
     Route: 042
     Dates: start: 20180725
  10. GLIMEPIRIDE. [Concomitant]
     Active Substance: GLIMEPIRIDE
     Dosage: 1 TABLET
     Route: 048
     Dates: start: 20171206
  11. JARDIANCE [Concomitant]
     Active Substance: EMPAGLIFLOZIN
     Route: 065
     Dates: start: 20180131
  12. LORAZEPAM. [Concomitant]
     Active Substance: LORAZEPAM
     Dosage: 1 TABLET AS NEEDED AS DIRECTED
     Route: 048
     Dates: start: 20171109
  13. MODAFINIL. [Concomitant]
     Active Substance: MODAFINIL
     Dosage: 1 TABLET IN THE MORNING FOR 30 DAYS.
     Route: 048
     Dates: start: 20180210
  14. INSULIN [Concomitant]
     Active Substance: INSULIN NOS
     Dosage: BD PEN NEEDLE UF MINI 31 GAUGE X 3/16
     Route: 065
     Dates: start: 20171221
  15. BETASERON [Concomitant]
     Active Substance: INTERFERON BETA-1B
     Route: 058
     Dates: start: 20180116
  16. CYCLOBENZAPRINE. [Concomitant]
     Active Substance: CYCLOBENZAPRINE
     Route: 048
     Dates: start: 20171119
  17. LEVOTHYROXINE. [Concomitant]
     Active Substance: LEVOTHYROXINE
     Route: 065
     Dates: start: 20171027
  18. METFORMIN [Concomitant]
     Active Substance: METFORMIN HYDROCHLORIDE
     Route: 065
     Dates: start: 20171206
  19. JANUMET [Concomitant]
     Active Substance: METFORMIN HYDROCHLORIDE\SITAGLIPTIN PHOSPHATE
     Dosage: 50 MG - 1000 MG TABLET?1 TABLET TWICE A DAY
     Route: 048
     Dates: start: 20171120
  20. LEVEMIR [Concomitant]
     Active Substance: INSULIN DETEMIR
     Dosage: U-100 INSULIN 100 UNITS/ML (3 ML)
     Route: 058
     Dates: start: 20180119
  21. VICTOZA [Concomitant]
     Active Substance: LIRAGLUTIDE
     Dosage: 3-PAK 0.6 MG/0.1 ML (18 MG/3 ML)
     Route: 058
     Dates: start: 20180201
  22. DULOXETINE. [Concomitant]
     Active Substance: DULOXETINE
     Route: 048
     Dates: start: 20161211
  23. FENOFIBRATE. [Concomitant]
     Active Substance: FENOFIBRATE
     Route: 065
     Dates: start: 20180111
  24. HYDROXYZINE HYDROCHLORIDE. [Concomitant]
     Active Substance: HYDROXYZINE HYDROCHLORIDE
     Route: 048
     Dates: start: 20180126
  25. INSULIN [Concomitant]
     Active Substance: INSULIN NOS
     Route: 058
     Dates: start: 20171027
  26. BETASERON [Concomitant]
     Active Substance: INTERFERON BETA-1B
     Route: 065
     Dates: start: 20171027
  27. GABAPENTIN. [Concomitant]
     Active Substance: GABAPENTIN
     Route: 048
     Dates: start: 20180126
  28. ROSUVASTATIN. [Concomitant]
     Active Substance: ROSUVASTATIN
     Route: 048
     Dates: start: 20180121
  29. INSULIN [Concomitant]
     Active Substance: INSULIN NOS
     Dosage: BD PEN NEEDLE UF ORIGINAL 29 GAUGE X 1/2
     Route: 065
     Dates: start: 20171030
  30. INSULIN [Concomitant]
     Active Substance: INSULIN NOS
     Dosage: SYRINGE-NEEDLE U-100 1 ML 30 GAUGE X 5/16
     Route: 065
     Dates: start: 20170509
  31. DULOXETINE. [Concomitant]
     Active Substance: DULOXETINE
     Route: 048
     Dates: start: 20180206
  32. LEVEMIR [Concomitant]
     Active Substance: INSULIN DETEMIR
     Dosage: U-100 INSULIN 100 UNITS/ML (3 ML)
     Route: 058
     Dates: start: 20170802
  33. TRULICITY [Concomitant]
     Active Substance: DULAGLUTIDE
     Dosage: 0.75 MG/0.5 ML
     Route: 058
     Dates: start: 20171219

REACTIONS (5)
  - Skin laceration [Unknown]
  - Sleep disorder [Unknown]
  - Localised infection [Recovered/Resolved]
  - Fall [Unknown]
  - Fatigue [Unknown]

NARRATIVE: CASE EVENT DATE: 2020
